FAERS Safety Report 9486450 (Version 2)
Quarter: 2013Q3

REPORT INFORMATION
  Report Type: Report from Study
  Country: US (occurrence: US)
  Receive Date: 20130829
  Receipt Date: 20130909
  Transmission Date: 20140515
  Serious: Yes (Life-Threatening, Hospitalization, Disabling)
  Sender: FDA-Public Use
  Company Number: US-CELGENEUS-163-21660-13083283

PATIENT
  Age: 59 Year
  Sex: Female
  Weight: 90.6 kg

DRUGS (29)
  1. ABRAXANE [Suspect]
     Indication: SMALL INTESTINE ADENOCARCINOMA
     Dosage: 220 MILLIGRAM/SQ. METER
     Route: 041
     Dates: start: 20130702
  2. ABRAXANE [Suspect]
     Dosage: 220 MILLIGRAM/SQ. METER
     Route: 041
     Dates: start: 20130723, end: 20130727
  3. DOXAZOSIN [Concomitant]
     Indication: HYPERTENSION
     Dosage: 4 MILLIGRAM
     Route: 048
     Dates: start: 201106
  4. METOPROLOL SUCCINATE [Concomitant]
     Indication: HYPERTENSION
     Dosage: 50 MILLIGRAM
     Route: 048
     Dates: start: 201106
  5. OXYCONTIN [Concomitant]
     Indication: PAIN
     Dosage: 60 MILLIGRAM
     Route: 048
     Dates: start: 201202
  6. ELAVIL [Concomitant]
     Indication: SLEEP DISORDER
     Dosage: 50 MILLIGRAM
     Route: 048
  7. REGLAN [Concomitant]
     Indication: PRODUCT USED FOR UNKNOWN INDICATION
     Dosage: 40 MILLIGRAM
     Route: 048
  8. AMBIEN [Concomitant]
     Indication: PRODUCT USED FOR UNKNOWN INDICATION
     Dosage: 12.5 MILLIGRAM
     Route: 048
  9. XANAX [Concomitant]
     Indication: ANXIETY
     Dosage: 1.5 MILLIGRAM
     Route: 048
     Dates: start: 201106
  10. OXYCODONE [Concomitant]
     Indication: PAIN
     Dosage: 30 MILLIGRAM
     Route: 048
     Dates: start: 201106
  11. CITALOPRAM [Concomitant]
     Indication: PRODUCT USED FOR UNKNOWN INDICATION
     Dosage: 40 MILLIGRAM
     Route: 048
  12. TRIBENZOR [Concomitant]
     Indication: HYPERTENSION
     Dosage: 40/5/12.5MG
     Route: 048
     Dates: start: 201106
  13. SENNA [Concomitant]
     Indication: CONSTIPATION
     Dosage: 6 TABLET
     Route: 048
     Dates: start: 201211
  14. LEXAPRO [Concomitant]
     Indication: ANTIDEPRESSANT THERAPY
     Dosage: 10 MILLIGRAM
     Route: 048
     Dates: start: 201302
  15. AMITRIPTYLINE [Concomitant]
     Indication: SLEEP DISORDER
     Dosage: 25 MILLIGRAM
     Route: 048
     Dates: start: 201106
  16. COMPAZINE [Concomitant]
     Indication: NAUSEA
     Dosage: 40 MILLIGRAM
     Route: 048
     Dates: start: 201106
  17. COMPAZINE [Concomitant]
     Indication: VOMITING
  18. LUNESTA [Concomitant]
     Indication: INSOMNIA
     Dosage: 1 TABLET
     Route: 048
     Dates: start: 20130627
  19. MAGNESIUM CITRATE [Concomitant]
     Indication: CONSTIPATION
     Dosage: 1 BOTTLE
     Route: 048
     Dates: start: 201212
  20. OMEPRAZOLE [Concomitant]
     Indication: GASTROOESOPHAGEAL REFLUX DISEASE
     Route: 048
     Dates: start: 201212
  21. OMEPRAZOLE [Concomitant]
     Route: 048
  22. SENOKOT S [Concomitant]
     Indication: CONSTIPATION
     Dosage: 6 TABLET
     Route: 048
     Dates: start: 201211
  23. ONDANSETRON [Concomitant]
     Indication: NAUSEA
     Dosage: 24 MILLIGRAM
     Route: 048
     Dates: start: 201106
  24. ONDANSETRON [Concomitant]
     Indication: VOMITING
     Route: 041
     Dates: start: 20130702, end: 20130827
  25. DEXAMETHASONE [Concomitant]
     Indication: CHEMOTHERAPY
     Dosage: 10 MILLIGRAM
     Route: 041
     Dates: start: 20130702
  26. HEPARIN [Concomitant]
     Indication: CATHETER MANAGEMENT
     Dosage: 2 MILLILITER
     Route: 041
  27. NEXIUM [Concomitant]
     Indication: PRODUCT USED FOR UNKNOWN INDICATION
     Route: 048
  28. LIDOCAINE [Concomitant]
     Indication: PRODUCT USED FOR UNKNOWN INDICATION
     Route: 058
     Dates: end: 20130827
  29. LIDOCAINE [Concomitant]
     Route: 058
     Dates: end: 20130827

REACTIONS (6)
  - Dehydration [Recovered/Resolved]
  - Renal failure acute [Recovered/Resolved]
  - Hypotension [Recovered/Resolved]
  - Pneumonia [Recovered/Resolved]
  - Duodenal obstruction [Not Recovered/Not Resolved]
  - Small intestinal obstruction [Not Recovered/Not Resolved]
